FAERS Safety Report 25882001 (Version 3)
Quarter: 2025Q4

REPORT INFORMATION
  Report Type: Spontaneous
  Country: JP (occurrence: JP)
  Receive Date: 20251005
  Receipt Date: 20251218
  Transmission Date: 20260118
  Serious: Yes (Death)
  Sender: ALEXION PHARMACEUTICALS
  Company Number: JP-AstraZeneca-CH-00960605A

PATIENT
  Age: 9 Decade
  Sex: Female
  Weight: 48.2 kg

DRUGS (1)
  1. SOLIRIS [Suspect]
     Active Substance: ECULIZUMAB
     Indication: Paroxysmal nocturnal haemoglobinuria
     Dosage: 900 MILLIGRAM, Q2W
     Dates: start: 20250917, end: 20250917

REACTIONS (1)
  - Death [Fatal]

NARRATIVE: CASE EVENT DATE: 20250930
